FAERS Safety Report 5746958-X (Version None)
Quarter: 2008Q2

REPORT INFORMATION
  Report Type: 
  Country: None (occurrence: None)
  Receive Date: 20080519
  Receipt Date: 20070712
  Transmission Date: 20081010
  Serious: Yes (Other)
  Sender: FDA-Public Use
  Company Number: PHEH2007US09132

PATIENT
  Age: 19 Year
  Sex: Female

DRUGS (1)
  1. TEGRETOL-XR [Suspect]
     Indication: BIPOLAR DISORDER
     Dosage: 200 MG, QD, ORAL
     Route: 048
     Dates: start: 20050101

REACTIONS (4)
  - ANTINUCLEAR ANTIBODY POSITIVE [None]
  - ARTHROPATHY [None]
  - DNA ANTIBODY POSITIVE [None]
  - SYSTEMIC LUPUS ERYTHEMATOSUS [None]
